FAERS Safety Report 21943013 (Version 3)
Quarter: 2023Q4

REPORT INFORMATION
  Report Type: Spontaneous
  Country: CA (occurrence: CA)
  Receive Date: 20230202
  Receipt Date: 20231021
  Transmission Date: 20240109
  Serious: Yes (Other)
  Sender: FDA-Public Use
  Company Number: CA-002147023-NVSC2023CA018753

PATIENT
  Age: 51 Year
  Sex: Female

DRUGS (19)
  1. ROSUVASTATIN CALCIUM [Suspect]
     Active Substance: ROSUVASTATIN CALCIUM
     Indication: Xanthoma
     Dosage: 10 MG
     Route: 048
  2. ROSUVASTATIN CALCIUM [Suspect]
     Active Substance: ROSUVASTATIN CALCIUM
     Indication: Type IIa hyperlipidaemia
     Dosage: 10 MG
     Route: 048
  3. ROSUVASTATIN CALCIUM [Suspect]
     Active Substance: ROSUVASTATIN CALCIUM
     Dosage: 10 MG
     Route: 048
  4. ATORVASTATIN CALCIUM [Suspect]
     Active Substance: ATORVASTATIN CALCIUM
     Indication: Xanthoma
     Dosage: UNK
     Route: 065
  5. ATORVASTATIN CALCIUM [Suspect]
     Active Substance: ATORVASTATIN CALCIUM
     Indication: Type IIa hyperlipidaemia
  6. EZETIMIBE [Suspect]
     Active Substance: EZETIMIBE
     Indication: Xanthoma
     Dosage: 10 MG
     Route: 065
  7. EZETIMIBE [Suspect]
     Active Substance: EZETIMIBE
     Indication: Type IIa hyperlipidaemia
     Dosage: UNK
     Route: 065
  8. EZETIMIBE [Suspect]
     Active Substance: EZETIMIBE
     Dosage: 10 MG
     Route: 065
  9. EZETIMIBE [Suspect]
     Active Substance: EZETIMIBE
     Dosage: UNK
     Route: 065
  10. PRAVASTATIN SODIUM [Suspect]
     Active Substance: PRAVASTATIN SODIUM
     Indication: Xanthoma
     Dosage: 10 MG
     Route: 065
  11. PRAVASTATIN SODIUM [Suspect]
     Active Substance: PRAVASTATIN SODIUM
     Indication: Type IIa hyperlipidaemia
     Dosage: UNK
     Route: 065
  12. EVOLOCUMAB [Suspect]
     Active Substance: EVOLOCUMAB
     Indication: Xanthoma
     Dosage: 140 MG
     Route: 058
  13. EVOLOCUMAB [Suspect]
     Active Substance: EVOLOCUMAB
     Indication: Type IIa hyperlipidaemia
     Dosage: 140 MG
     Route: 058
  14. COLESEVELAM HYDROCHLORIDE [Suspect]
     Active Substance: COLESEVELAM HYDROCHLORIDE
     Indication: Xanthoma
     Dosage: UNK (FORMULATION: FILM COATED TABLETS)
     Route: 065
  15. COLESEVELAM HYDROCHLORIDE [Suspect]
     Active Substance: COLESEVELAM HYDROCHLORIDE
     Indication: Type IIa hyperlipidaemia
     Dosage: UNK (FORMULATION: POWDER FOR ORAL SUSPENSION)
     Route: 065
  16. COLESEVELAM HYDROCHLORIDE [Suspect]
     Active Substance: COLESEVELAM HYDROCHLORIDE
     Dosage: UNK (FORMULATION: POWDER FOR ORAL SUSPENSION)
     Route: 065
  17. COLESEVELAM HYDROCHLORIDE [Suspect]
     Active Substance: COLESEVELAM HYDROCHLORIDE
     Dosage: UNK (FORMULATION: POWDER FOR SUSPENSION ORAL)
     Route: 065
  18. REPATHA [Suspect]
     Active Substance: EVOLOCUMAB
     Indication: Type IIa hyperlipidaemia
     Dosage: 140 MG (AUTOINJECTOR)
     Route: 058
  19. REPATHA [Suspect]
     Active Substance: EVOLOCUMAB
     Dosage: UNK
     Route: 058

REACTIONS (2)
  - Drug intolerance [Unknown]
  - Drug ineffective [Unknown]
